FAERS Safety Report 9280594 (Version 8)
Quarter: 2016Q3

REPORT INFORMATION
  Report Type: Report from Study
  Country: US (occurrence: US)
  Receive Date: 20130509
  Receipt Date: 20160929
  Transmission Date: 20161109
  Serious: Yes (Hospitalization, Other)
  Sender: FDA-Public Use
  Company Number: US-SANOFI-AVENTIS-2013SA046024

PATIENT
  Age: 62 Year
  Sex: Female

DRUGS (1)
  1. AUBAGIO [Suspect]
     Active Substance: TERIFLUNOMIDE
     Indication: MULTIPLE SCLEROSIS
     Route: 048
     Dates: start: 20130525

REACTIONS (11)
  - Blister [Recovering/Resolving]
  - Hypersensitivity [Unknown]
  - Fall [Unknown]
  - Depression [Not Recovered/Not Resolved]
  - Movement disorder [Recovering/Resolving]
  - Diarrhoea [Unknown]
  - Urinary tract infection [Recovering/Resolving]
  - Skin ulcer [Unknown]
  - Peripheral swelling [Unknown]
  - Constipation [Unknown]
  - Musculoskeletal pain [Recovering/Resolving]

NARRATIVE: CASE EVENT DATE: 201304
